FAERS Safety Report 5593316-7 (Version None)
Quarter: 2008Q1

REPORT INFORMATION
  Report Type: 
  Country: None (occurrence: None)
  Receive Date: 20080116
  Receipt Date: 20080110
  Transmission Date: 20080703
  Serious: Yes (Hospitalization)
  Sender: FDA-Public Use
  Company Number: B0502505A

PATIENT
  Age: 59 Year
  Sex: Male

DRUGS (2)
  1. ZELITREX [Suspect]
     Route: 048
     Dates: start: 20071017, end: 20071031
  2. ROCEPHIN [Suspect]
     Route: 042
     Dates: start: 20071017, end: 20071031

REACTIONS (7)
  - CHILLS [None]
  - EYE INFLAMMATION [None]
  - FATIGUE [None]
  - MUSCULOSKELETAL STIFFNESS [None]
  - PYREXIA [None]
  - RASH MORBILLIFORM [None]
  - SERUM SICKNESS [None]
